FAERS Safety Report 18058848 (Version 1)
Quarter: 2020Q3

REPORT INFORMATION
  Report Type: Spontaneous
  Country: FR (occurrence: FR)
  Receive Date: 20200723
  Receipt Date: 20200723
  Transmission Date: 20201103
  Serious: Yes (Life-Threatening)
  Sender: FDA-Public Use
  Company Number: FR-MYLANLABS-2020M1065043

PATIENT
  Age: 33 Year
  Sex: Male
  Weight: 90 kg

DRUGS (13)
  1. LINEZOLIDE ARROW [Suspect]
     Active Substance: LINEZOLID
     Indication: COVID-19
     Dosage: 600 MILLIGRAM
     Dates: start: 20200316, end: 20200318
  2. ALPRAZOLAM ARROW [Concomitant]
     Active Substance: ALPRAZOLAM
     Dosage: UNK
  3. TOPLEXIL                           /00111401/ [Concomitant]
     Active Substance: ACETAMINOPHEN\GUAIFENESIN\OXOMEMAZINE\SODIUM BENZOATE
     Dosage: UNK
  4. FUROSEMIDE. [Concomitant]
     Active Substance: FUROSEMIDE
     Dosage: UNK
  5. LOXAPAC                            /00401802/ [Concomitant]
     Active Substance: LOXAPINE SUCCINATE
     Dosage: UNK
  6. PROPOFOL LIPURO [Concomitant]
     Active Substance: PROPOFOL
     Dosage: UNK,  1 % (10 MG/ML)
  7. MIDAZOLAM. [Concomitant]
     Active Substance: MIDAZOLAM
     Dosage: UNK
  8. CEFOTAXIME                         /00497602/ [Concomitant]
     Active Substance: CEFOTAXIME SODIUM
     Dosage: UNK
  9. ROVAMYCINE                         /00074401/ [Suspect]
     Active Substance: SPIRAMYCIN
     Indication: COVID-19
     Dosage: 3 KILO?INTERNATIONAL UNIT
     Dates: start: 20200316, end: 20200319
  10. LOVENOX [Concomitant]
     Active Substance: ENOXAPARIN SODIUM
     Dosage: UNK
  11. LOPINAVIR/RITONAVIR MYLAN [Suspect]
     Active Substance: LOPINAVIR\RITONAVIR
     Indication: COVID-19
     Dosage: 800 MILLIGRAM
     Route: 048
     Dates: start: 20200316, end: 20200322
  12. SUFENTA [Concomitant]
     Active Substance: SUFENTANIL CITRATE
     Dosage: UNK
  13. PARACETAMOL MYLAN [Concomitant]
     Active Substance: ACETAMINOPHEN
     Dosage: UNK

REACTIONS (2)
  - Off label use [Unknown]
  - Hepatocellular injury [Recovered/Resolved]

NARRATIVE: CASE EVENT DATE: 20200316
